FAERS Safety Report 17335816 (Version 4)
Quarter: 2020Q1

REPORT INFORMATION
  Report Type: Spontaneous
  Country: CA (occurrence: CA)
  Receive Date: 20200128
  Receipt Date: 20200327
  Transmission Date: 20200409
  Serious: Yes (Hospitalization)
  Sender: FDA-Public Use
  Company Number: CA-GLAXOSMITHKLINE-CA2020AMR014812

PATIENT
  Age: 75 Year
  Sex: Female

DRUGS (1)
  1. BENLYSTA [Suspect]
     Active Substance: BELIMUMAB
     Indication: SYSTEMIC LUPUS ERYTHEMATOSUS
     Dosage: UNK
     Route: 058

REACTIONS (10)
  - Localised infection [Recovered/Resolved]
  - Arthralgia [Recovering/Resolving]
  - Scab [Unknown]
  - Wound [Unknown]
  - Ecchymosis [Unknown]
  - Wound haemorrhage [Unknown]
  - Pyrexia [Unknown]
  - Gait disturbance [Unknown]
  - Gastroenteritis [Recovered/Resolved]
  - Fall [Unknown]

NARRATIVE: CASE EVENT DATE: 20200102
